FAERS Safety Report 7799543-2 (Version None)
Quarter: 2011Q4

REPORT INFORMATION
  Report Type: 
  Country: None (occurrence: None)
  Receive Date: 20111006
  Receipt Date: 20111006
  Transmission Date: 20120403
  Serious: No
  Sender: FDA-Public Use
  Company Number: None

PATIENT
  Age: 32 Year
  Sex: Female

DRUGS (2)
  1. CIPROFLOXACIN [Suspect]
     Indication: PROPHYLAXIS
     Dosage: 400MG
     Route: 041
     Dates: start: 20110929, end: 20110929
  2. CIPROFLOXACIN [Suspect]
     Indication: PREOPERATIVE CARE
     Dosage: 400MG
     Route: 041
     Dates: start: 20110929, end: 20110929

REACTIONS (1)
  - URTICARIA [None]
